FAERS Safety Report 5644449-8 (Version None)
Quarter: 2008Q1

REPORT INFORMATION
  Report Type: 
  Country: None (occurrence: None)
  Receive Date: 20080229
  Receipt Date: 20070102
  Transmission Date: 20080703
  Serious: No
  Sender: FDA-Public Use
  Company Number: A0633911A

PATIENT
  Age: 4 Year

DRUGS (1)
  1. VALTREX [Suspect]
     Indication: VIRAL INFECTION
     Route: 048

REACTIONS (3)
  - DRUG ADMINISTRATION ERROR [None]
  - DYSPHAGIA [None]
  - REACTION TO COLOURING [None]
